FAERS Safety Report 12274286 (Version 1)
Quarter: 2016Q2

REPORT INFORMATION
  Report Type: Spontaneous
  Country: US (occurrence: US)
  Receive Date: 20160415
  Receipt Date: 20160415
  Transmission Date: 20160815
  Serious: No
  Sender: FDA-Public Use
  Company Number: US-ALLERGAN-1510436US

PATIENT
  Age: 63 Year
  Sex: Female

DRUGS (1)
  1. LATISSE [Suspect]
     Active Substance: BIMATOPROST
     Indication: PRODUCT USED FOR UNKNOWN INDICATION
     Dosage: TO UPPER LID EYELASHES AT NIGHTIME, ONCE AT NIGHT, QD
     Route: 047
     Dates: start: 2012, end: 201412

REACTIONS (2)
  - Iris hyperpigmentation [Not Recovered/Not Resolved]
  - Medication error [Recovered/Resolved]
